FAERS Safety Report 7869344-5 (Version None)
Quarter: 2011Q4

REPORT INFORMATION
  Report Type: 
  Country: None (occurrence: None)
  Receive Date: 20111028
  Receipt Date: 20111028
  Transmission Date: 20120403
  Serious: Yes (Other)
  Sender: FDA-Public Use
  Company Number: None

PATIENT
  Sex: Female
  Weight: 51.4 kg

DRUGS (1)
  1. STANDARD PEG KIT 'ENDO VIVE' [Suspect]

REACTIONS (1)
  - FLAVOBACTERIUM TEST POSITIVE [None]
